FAERS Safety Report 5479157-X (Version None)
Quarter: 2007Q4

REPORT INFORMATION
  Report Type: 
  Country: None (occurrence: None)
  Receive Date: 20071008
  Receipt Date: 20070928
  Transmission Date: 20080405
  Serious: Yes (Hospitalization)
  Sender: FDA-Public Use
  Company Number: PHBS2007PL14351

PATIENT
  Age: 59 Year
  Sex: Male

DRUGS (4)
  1. CARBAMAZEPINE [Suspect]
     Indication: TRIGEMINAL NEURALGIA
     Dosage: 200 MG/DAY
     Route: 065
  2. CARBAMAZEPINE [Suspect]
     Dosage: 600 MG/DAY IN 2 DIVIDED DOSES
     Route: 065
  3. HYDROCHLOROTHIAZIDE [Concomitant]
     Indication: HYPERTENSION
     Dosage: 25 MG/DAY
     Route: 065
  4. AMLODIPINE [Concomitant]
     Indication: HYPERTENSION
     Dosage: 10 MG/DAY
     Route: 065

REACTIONS (13)
  - ANOREXIA [None]
  - ASTHENIA [None]
  - BLOOD CREATININE DECREASED [None]
  - BLOOD OSMOLARITY DECREASED [None]
  - BLOOD URIC ACID DECREASED [None]
  - CONVULSION [None]
  - EXTENSOR PLANTAR RESPONSE [None]
  - EXTRAPYRAMIDAL DISORDER [None]
  - HYPONATRAEMIA [None]
  - HYPOREFLEXIA [None]
  - INAPPROPRIATE ANTIDIURETIC HORMONE SECRETION [None]
  - NAUSEA [None]
  - URINE OSMOLARITY INCREASED [None]
